FAERS Safety Report 7329232-X (Version None)
Quarter: 2011Q1

REPORT INFORMATION
  Report Type: 
  Country: None (occurrence: None)
  Receive Date: 20110225
  Receipt Date: 20110225
  Transmission Date: 20110831
  Serious: Yes (Hospitalization)
  Sender: FDA-Public Use
  Company Number: None

PATIENT
  Age: 61 Year
  Sex: Male
  Weight: 83.46 kg

DRUGS (4)
  1. SERTRALINE HYDROCHLORIDE [Suspect]
     Indication: POST-TRAUMATIC STRESS DISORDER
     Dosage: 200 MG EVERY DAY PO
     Route: 048
     Dates: start: 20090829, end: 20101206
  2. SERTRALINE HYDROCHLORIDE [Suspect]
     Indication: DEPRESSION
     Dosage: 200 MG EVERY DAY PO
     Route: 048
     Dates: start: 20090829, end: 20101206
  3. BUSPIRONE HCL [Suspect]
  4. TRAZODONE HCL [Suspect]

REACTIONS (1)
  - SEROTONIN SYNDROME [None]
